FAERS Safety Report 4761892-X (Version None)
Quarter: 2005Q3

REPORT INFORMATION
  Report Type: 
  Country: None (occurrence: None)
  Receive Date: 20050906
  Receipt Date: 20050829
  Transmission Date: 20060218
  Serious: Yes (Hospitalization)
  Sender: FDA-Public Use
  Company Number: US-BRISTOL-MYERS SQUIBB COMPANY-13093042

PATIENT
  Age: 84 Year
  Sex: Male
  Weight: 75 kg

DRUGS (10)
  1. ABILIFY [Suspect]
     Route: 048
  2. ATIVAN [Concomitant]
  3. COUMADIN [Concomitant]
  4. DEPAKOTE [Concomitant]
  5. PEPCID [Concomitant]
  6. HYDROXYZINE [Concomitant]
  7. LEXAPRO [Concomitant]
  8. PROAMATINE [Concomitant]
  9. RISPERDAL [Concomitant]
  10. TIMOPTIC [Concomitant]

REACTIONS (1)
  - DIABETES INSIPIDUS [None]
